FAERS Safety Report 21864127 (Version 2)
Quarter: 2023Q1

REPORT INFORMATION
  Report Type: Report from Study
  Country: US (occurrence: US)
  Receive Date: 20230116
  Receipt Date: 20230316
  Transmission Date: 20230417
  Serious: Yes (Other)
  Sender: FDA-Public Use
  Company Number: US-ABBVIE-4270405

PATIENT
  Sex: Female

DRUGS (2)
  1. HUMIRA [Suspect]
     Active Substance: ADALIMUMAB
     Indication: Hidradenitis
     Dosage: CITRATE FREE?FORM STRENGTH 40 MILLIGRAMS
     Route: 058
     Dates: start: 20191127
  2. HUMIRA [Suspect]
     Active Substance: ADALIMUMAB
     Indication: Ankylosing spondylitis

REACTIONS (14)
  - Hip arthroplasty [Unknown]
  - Arthritis [Unknown]
  - Inflammation [Unknown]
  - Musculoskeletal disorder [Unknown]
  - Fatigue [Unknown]
  - Hernia [Unknown]
  - Therapeutic product effect incomplete [Unknown]
  - Pelvic pain [Unknown]
  - Back pain [Unknown]
  - Weight decreased [Unknown]
  - Pain in extremity [Unknown]
  - Knee arthroplasty [Unknown]
  - Hyperthyroidism [Unknown]
  - Pain [Unknown]
